FAERS Safety Report 25426351 (Version 2)
Quarter: 2025Q2

REPORT INFORMATION
  Report Type: Spontaneous
  Country: JP (occurrence: JP)
  Receive Date: 20250612
  Receipt Date: 20250614
  Transmission Date: 20250716
  Serious: Yes (Death, Hospitalization, Other)
  Sender: UNITED THERAPEUTICS
  Company Number: JP-UNITED THERAPEUTICS-UNT-2025-018163

PATIENT
  Age: 66 Year
  Sex: Female

DRUGS (1)
  1. TYVASO [Suspect]
     Active Substance: TREPROSTINIL
     Indication: Product used for unknown indication

REACTIONS (5)
  - Hepatic cirrhosis [Fatal]
  - Condition aggravated [Fatal]
  - Rheumatic disorder [Unknown]
  - Malaise [Recovering/Resolving]
  - Dyspnoea [Unknown]
